FAERS Safety Report 9634546 (Version 2)
Quarter: 2013Q4

REPORT INFORMATION
  Report Type: Spontaneous
  Country: GB (occurrence: GB)
  Receive Date: 20131021
  Receipt Date: 20131024
  Transmission Date: 20140711
  Serious: Yes (Life-Threatening, Other)
  Sender: FDA-Public Use
  Company Number: GB-PFIZER INC-2013297372

PATIENT
  Age: 19 Year
  Sex: Female

DRUGS (14)
  1. TAZOCIN [Suspect]
     Dosage: 4.5 MG, 3X/DAY
     Route: 042
  2. NORETHISTERONE [Suspect]
     Dosage: 5 MG, 3X/DAY
     Route: 048
  3. OMEPRAZOLE [Suspect]
     Dosage: UNK
  4. KETALAR [Suspect]
     Indication: PAIN
     Dosage: 6 ML, ONCE HOURLY
     Route: 042
     Dates: start: 20070921, end: 20070928
  5. ONDANSETRON [Suspect]
     Dosage: 8 MG, 3X/DAY
     Route: 042
  6. VORICONAZOLE [Suspect]
     Dosage: 200 MG, 2X/DAY
     Route: 048
  7. PARACETAMOL [Suspect]
     Dosage: UNK
     Route: 042
  8. MORPHINE [Suspect]
     Dosage: UNK
     Route: 042
  9. ACICLOVIR [Suspect]
     Dosage: UNK
  10. ALLOPURINOL [Suspect]
     Dosage: 300 MG, 1X/DAY
     Route: 048
  11. CASPOFUNGIN [Suspect]
     Dosage: 70 MG, 1X/DAY
     Route: 042
  12. CHLORPHENAMINE MALEATE [Suspect]
     Dosage: 10 MG, 4X/DAY
     Route: 042
  13. CICLOSPORIN [Suspect]
     Dosage: UNK
  14. ETOPOPHOS [Suspect]
     Dosage: 4650 MG, 1X/DAY
     Route: 042
     Dates: start: 20070915

REACTIONS (3)
  - Dilatation intrahepatic duct acquired [Unknown]
  - Hepatotoxicity [Unknown]
  - Venoocclusive liver disease [Unknown]
